FAERS Safety Report 22335794 (Version 1)
Quarter: 2023Q2

REPORT INFORMATION
  Report Type: Report from Study
  Country: US (occurrence: None)
  Receive Date: 20230518
  Receipt Date: 20230518
  Transmission Date: 20230722
  Serious: Yes (Death, Other)
  Sender: FDA-Public Use
  Company Number: US-ROCHE-3349156

PATIENT

DRUGS (29)
  1. RITUXIMAB [Suspect]
     Active Substance: RITUXIMAB
     Indication: Burkitt^s lymphoma
     Dosage: ACTUAL DOSE 728 MG
     Route: 065
     Dates: start: 20130515
  2. RITUXIMAB [Suspect]
     Active Substance: RITUXIMAB
     Dosage: ACTUAL DOSE 705 MG
     Route: 065
     Dates: start: 20130605
  3. RITUXIMAB [Suspect]
     Active Substance: RITUXIMAB
     Dosage: ACTUAL DOSE 698 MG
     Route: 065
     Dates: start: 20130628
  4. RITUXIMAB [Suspect]
     Active Substance: RITUXIMAB
     Dosage: ACTUAL DOSE 723.8 MG
     Route: 065
     Dates: start: 20130718
  5. CYCLOPHOSPHAMIDE [Suspect]
     Active Substance: CYCLOPHOSPHAMIDE
     Indication: Burkitt^s lymphoma
     Dosage: ACTUAL DOSE 1455 MG
     Route: 065
     Dates: start: 20130519
  6. CYCLOPHOSPHAMIDE [Suspect]
     Active Substance: CYCLOPHOSPHAMIDE
     Dosage: ACTUAL DOSE 1410 MG, MOST RECENT DOSE WAS ADMINISTERED ON 09/JUN/2013
     Route: 065
     Dates: start: 20130605
  7. CYCLOPHOSPHAMIDE [Suspect]
     Active Substance: CYCLOPHOSPHAMIDE
     Dosage: ACTUAL DOSE 1674 MG,
     Route: 065
     Dates: start: 20130702
  8. CYCLOPHOSPHAMIDE [Suspect]
     Active Substance: CYCLOPHOSPHAMIDE
     Dosage: ACTUAL DOSE 1447.5 MG,
     Route: 065
     Dates: start: 20130722
  9. DOXORUBICIN [Suspect]
     Active Substance: DOXORUBICIN
     Indication: Burkitt^s lymphoma
     Dosage: MOST RECENT DOSE ADMINISTERED WAS ON 18/MAY/2013, ACTUAL DOSE WAS ON 77.6 MG
     Route: 065
     Dates: start: 20130515
  10. DOXORUBICIN [Suspect]
     Active Substance: DOXORUBICIN
     Dosage: ACTUAL DOSE 75.2 MG, MOST RECENT DOSE WAS ADMINISTERED ON 08/JUN/2013
     Route: 065
     Dates: start: 20130605
  11. DOXORUBICIN [Suspect]
     Active Substance: DOXORUBICIN
     Dosage: MOST RECENT DOSE WAS ADMINISTERED ON 01/JUL/2013, ACTUAL DOSE WAS 89.28 MG
     Route: 065
     Dates: start: 20130628
  12. DOXORUBICIN [Suspect]
     Active Substance: DOXORUBICIN
     Dosage: MOST RECENT DOSE ADMINISTERED WAS ON 21/JUL/2013 AND ACTUAL DOSE WAS 77.2 MG
     Route: 065
     Dates: start: 20130718
  13. ETOPOSIDE [Suspect]
     Active Substance: ETOPOSIDE
     Indication: Burkitt^s lymphoma
     Dosage: MOST RECENT DOSE ADMINISTERED WAS ON 18/MAY/2013. ACTUAL DOSE WAS 388MG
     Route: 065
     Dates: start: 20130515
  14. ETOPOSIDE [Suspect]
     Active Substance: ETOPOSIDE
     Dosage: MOST RECENT DOSE ADMINISTERED WAS ON 08/JUN/2013, ACTUAL DOSE WAS 376 MG
     Route: 065
     Dates: start: 20130605
  15. ETOPOSIDE [Suspect]
     Active Substance: ETOPOSIDE
     Dosage: MOST RECENT DOSE ADMINISTERED WAS ON 01/JUL/2013, ACTUAL DOSE WAS 446.4 MG
     Route: 065
     Dates: start: 20130628
  16. ETOPOSIDE [Suspect]
     Active Substance: ETOPOSIDE
     Dosage: MOST RECENT DOSE ADMINISTERED WAS ON  21/JUL/2013, ACTUAL DOSE WAS  386 MG
     Route: 065
     Dates: start: 20130718
  17. FILGRASTIM [Suspect]
     Active Substance: FILGRASTIM
     Indication: Burkitt^s lymphoma
     Dosage: 29/MAY/2013, MOST RECENT DOSE ADMINISTERED. ACTUAL DOSE WAS 4800 MCG
     Route: 065
     Dates: start: 20130520
  18. FILGRASTIM [Suspect]
     Active Substance: FILGRASTIM
     Dosage: 19/JUN/2013, MOST RECENT DOSE ADMINISTERED. ACTUAL DOSE WAS 4800 MCG
     Route: 065
     Dates: start: 20130610
  19. FILGRASTIM [Suspect]
     Active Substance: FILGRASTIM
     Dosage: 12/JUL/2013, MOST RECENT DOSE ADMINISTERED. ACTUAL DOSE WAS 4800 MCG
     Route: 065
     Dates: start: 20130703
  20. FILGRASTIM [Suspect]
     Active Substance: FILGRASTIM
     Dosage: 01/AUG/2013,, MOST RECENT DOSE ADMINISTERED. ACTUAL DOSE WAS 4800 MCG
     Route: 065
     Dates: start: 20130723
  21. METHOTREXATE [Suspect]
     Active Substance: METHOTREXATE
     Indication: Burkitt^s lymphoma
     Dosage: 18/JUL/2013, 22/JUL/2013, MOST RECENT DOSE ADMINISTERED.
     Route: 065
     Dates: start: 20130702
  22. PREDNISONE [Suspect]
     Active Substance: PREDNISONE
     Indication: Burkitt^s lymphoma
     Dosage: ON 19/JUN//2013, MOST RECENT DOSE WAS ADMINISTERED, ACTUAL DOSE 1188 MG
     Route: 065
     Dates: start: 20130515
  23. PREDNISONE [Suspect]
     Active Substance: PREDNISONE
     Dosage: ON 09/JUN/2013, MOST RECENT DOSE WAS ADMINISTERED, ACTUAL DOSE 1188 MG
     Route: 065
     Dates: start: 20130605
  24. PREDNISONE [Suspect]
     Active Substance: PREDNISONE
     Dosage: ON 02/JUL/2013,
     Route: 065
     Dates: start: 20130628
  25. PREDNISONE [Suspect]
     Active Substance: PREDNISONE
     Dosage: ON 22/JUL/2012, MOST RECENT DOSE WAS ADMINISTERED. ACTUAL DOSE 1050 MG
     Route: 065
     Dates: start: 20130718
  26. VINCRISTINE [Suspect]
     Active Substance: VINCRISTINE
     Indication: Burkitt^s lymphoma
     Dosage: MOST RECENT DOSE WAS ADMINISTERED ON 18/MAY/2013, ACTUAL DOSE WAS 3.1 MG
     Route: 065
     Dates: start: 20130515
  27. VINCRISTINE [Suspect]
     Active Substance: VINCRISTINE
     Dosage: MOST RECENT DOSE WAS ADMINISTERED ON 08/JUN/2013,ACTUAL DOSE WAS 3.1 MG. ACTUAL DOSE WAS
     Route: 065
     Dates: start: 20130605
  28. VINCRISTINE [Suspect]
     Active Substance: VINCRISTINE
     Dosage: ACTUAL DOSE 0.744 MG, MOST RECENT DOSE WAS ADMINISTERED ON 01/JUL/2021
     Route: 065
     Dates: start: 20130628
  29. VINCRISTINE [Suspect]
     Active Substance: VINCRISTINE
     Dosage: ACTUAL DOSE 0.77 MG, MOST RECENT DOSE WAS ADMINISTERED ON 21/JUL/2013
     Route: 065
     Dates: start: 20130718

REACTIONS (7)
  - Dehydration [Not Recovered/Not Resolved]
  - Angina pectoris [Not Recovered/Not Resolved]
  - Hypotension [Not Recovered/Not Resolved]
  - Hallucination [Not Recovered/Not Resolved]
  - Respiratory failure [Fatal]
  - Sepsis [Not Recovered/Not Resolved]
  - Febrile neutropenia [Not Recovered/Not Resolved]

NARRATIVE: CASE EVENT DATE: 20130526
